FAERS Safety Report 9549882 (Version 1)
Quarter: 2013Q3

REPORT INFORMATION
  Report Type: Spontaneous
  Country: US (occurrence: US)
  Receive Date: 20130924
  Receipt Date: 20130924
  Transmission Date: 20140515
  Serious: Yes (Other)
  Sender: FDA-Public Use
  Company Number: US-GILEAD-2013-0082502

PATIENT
  Age: 77 Year
  Sex: Male

DRUGS (2)
  1. LETAIRIS [Suspect]
     Indication: PULMONARY ARTERIAL HYPERTENSION
     Dosage: 10 MG, QD
     Route: 048
     Dates: start: 20130111
  2. LETAIRIS [Suspect]
     Dosage: 5 MG, UNK
     Dates: end: 20130828

REACTIONS (2)
  - Skin lesion [Recovered/Resolved]
  - Blister [Unknown]
